FAERS Safety Report 6614140-X (Version None)
Quarter: 2010Q1

REPORT INFORMATION
  Report Type: 
  Country: None (occurrence: None)
  Receive Date: 20100304
  Receipt Date: 20100226
  Transmission Date: 20100710
  Serious: Yes (Death)
  Sender: FDA-Public Use
  Company Number: ES-CEPHALON-2010001219

PATIENT
  Age: 80 Year
  Sex: Male

DRUGS (3)
  1. TREANDA [Suspect]
  2. RITUXIMAB [Suspect]
  3. ALLOPURINOL [Concomitant]

REACTIONS (1)
  - EPIDERMOLYSIS [None]
